FAERS Safety Report 8481788 (Version 4)
Quarter: 2013Q3

REPORT INFORMATION
  Report Type: Spontaneous
  Country: JP (occurrence: JP)
  Receive Date: 20120329
  Receipt Date: 20130829
  Transmission Date: 20140515
  Serious: Yes (Other)
  Sender: FDA-Public Use
  Company Number: JP-PFIZER INC-2012077627

PATIENT
  Age: 61 Year
  Sex: Female
  Weight: 46 kg

DRUGS (10)
  1. LYRICA [Suspect]
     Indication: NEURALGIA
     Dosage: 25 MG, 3X/DAY
     Route: 048
     Dates: start: 20120312, end: 20120326
  2. MEXITIL [Concomitant]
     Indication: NEURALGIA
     Dosage: 50 MG, 3X/DAY
     Route: 048
     Dates: start: 20120312
  3. PREDONINE [Concomitant]
     Indication: ADRENAL INSUFFICIENCY
     Dosage: 5 MG, 1X/DAY
     Route: 048
     Dates: start: 2008
  4. ZANTAC [Concomitant]
     Indication: PROPHYLAXIS AGAINST GASTROINTESTINAL ULCER
     Dosage: 75 MG, 1X/DAY
     Route: 048
     Dates: start: 2008
  5. L-CARTIN [Concomitant]
     Indication: CARNITINE DEFICIENCY
     Dosage: 300 MG, 1X/DAY
     Route: 048
     Dates: start: 20120112
  6. SELARA [Concomitant]
     Indication: HYPERTENSION
     Dosage: 50 MG, 2X/DAY
     Route: 048
     Dates: start: 2010
  7. RASILEZ [Concomitant]
     Indication: HYPERTENSION
     Dosage: 150 MG, 2X/DAY
     Route: 048
     Dates: start: 2010
  8. FLORINEF [Concomitant]
     Indication: ADRENAL INSUFFICIENCY
     Dosage: 0.1 MG, 2X/DAY
     Route: 048
     Dates: start: 2010
  9. GOSHAJINKIGAN [Concomitant]
     Indication: NEURALGIA
     Dosage: 1 DF, 3X/DAY
     Route: 048
     Dates: start: 20120312
  10. JUZENTAIHOTO [Concomitant]
     Indication: NEURALGIA
     Dosage: 1 DF, 3X/DAY
     Route: 048
     Dates: start: 20120312

REACTIONS (3)
  - Overdose [Recovering/Resolving]
  - Hypertensive crisis [Recovering/Resolving]
  - Drug level increased [Recovering/Resolving]
